FAERS Safety Report 12498856 (Version 1)
Quarter: 2016Q2

REPORT INFORMATION
  Report Type: Spontaneous
  Country: US (occurrence: None)
  Receive Date: 20160624
  Receipt Date: 20160624
  Transmission Date: 20160815
  Serious: Yes (Other)
  Sender: FDA-Public Use
  Company Number: None

PATIENT
  Age: 39 Year
  Sex: Female
  Weight: 79.38 kg

DRUGS (7)
  1. XYXAL [Concomitant]
  2. PREDNISONE. [Concomitant]
     Active Substance: PREDNISONE
  3. CLARITIN [Concomitant]
     Active Substance: LORATADINE
  4. ALLEGRA [Concomitant]
     Active Substance: FEXOFENADINE HYDROCHLORIDE
  5. NAFTIN [Suspect]
     Active Substance: NAFTIFINE HYDROCHLORIDE
     Indication: TINEA PEDIS
     Dosage: 10 DROP(S) IN THE MORNING APPLIED TO A SURFACE, USUALLY THE SKIN
     Route: 061
     Dates: start: 20160608, end: 20160617
  6. MARLISSA [Concomitant]
     Active Substance: ETHINYL ESTRADIOL\LEVONORGESTREL
  7. B-12 VITAMIN [Concomitant]

REACTIONS (4)
  - Haemorrhage [None]
  - Skin discolouration [None]
  - Hypersensitivity [None]
  - Laceration [None]

NARRATIVE: CASE EVENT DATE: 20160615
